FAERS Safety Report 9411559 (Version 1)
Quarter: 2013Q3

REPORT INFORMATION
  Report Type: Spontaneous
  Country: US (occurrence: None)
  Receive Date: 20130718
  Receipt Date: 20130718
  Transmission Date: 20140515
  Serious: Yes (Life-Threatening, Hospitalization, Disabling)
  Sender: FDA-Public Use
  Company Number: None

PATIENT
  Age: 62 Year
  Sex: Female
  Weight: 68.95 kg

DRUGS (5)
  1. EFFIENT [Suspect]
     Indication: CARDIAC DISORDER
     Dates: start: 2009, end: 2013
  2. EFFIENT [Suspect]
     Dates: start: 2009, end: 2013
  3. EXFORGE [Suspect]
     Indication: STENT PLACEMENT
  4. VALCARTAN [Concomitant]
  5. AMLEDIPIME [Concomitant]

REACTIONS (6)
  - Blood calcium decreased [None]
  - Haemorrhage [None]
  - Pulmonary haemorrhage [None]
  - Large intestinal haemorrhage [None]
  - Obstructive airways disorder [None]
  - Gastrointestinal pain [None]
